FAERS Safety Report 17581870 (Version 1)
Quarter: 2020Q1

REPORT INFORMATION
  Report Type: Spontaneous
  Country: US (occurrence: US)
  Receive Date: 20200325
  Receipt Date: 20200325
  Transmission Date: 20200409
  Serious: Yes (Hospitalization)
  Sender: FDA-Public Use
  Company Number: None

PATIENT
  Age: 83 Year
  Sex: Male

DRUGS (1)
  1. RESCUE BLEND RAW ORGANIC HONEY WITH CBD 250 MG [Suspect]
     Active Substance: CANNABIDIOL\HERBALS
     Dates: start: 20200320, end: 20200320

REACTIONS (7)
  - Paralysis [None]
  - Gait inability [None]
  - Loss of personal independence in daily activities [None]
  - Loss of consciousness [None]
  - Vomiting [None]
  - Aphasia [None]
  - Neurotoxicity [None]

NARRATIVE: CASE EVENT DATE: 20200320
